FAERS Safety Report 8847502 (Version 2)
Quarter: 2012Q4

REPORT INFORMATION
  Report Type: 
  Country: US (occurrence: US)
  Receive Date: 20121018
  Receipt Date: 20121128
  Transmission Date: 20130627
  Serious: Yes (Life-Threatening, Other)
  Sender: FDA-Public Use
  Company Number: CHPA2012US021589

PATIENT
  Age: 69 Year
  Sex: Male

DRUGS (7)
  1. MAALOX ANTACID/ANTIGAS RS LIQ COOL MINT [Suspect]
     Indication: DYSPEPSIA
     Dosage: 3 swigs, every two days
     Route: 048
     Dates: start: 1950, end: 201208
  2. FISH OIL [Concomitant]
     Dosage: 300 mg, Unk
  3. METOPROLOL [Concomitant]
     Dosage: 50 mg, Unk
  4. SIMVASTATIN [Concomitant]
     Dosage: 40 mg, Unk
  5. COUMADIN ^BOOTS^ [Concomitant]
     Dosage: 2 mg, Unk
  6. BABY ASPIRIN [Concomitant]
     Dosage: 81 mg, Unk
  7. TUMS [Concomitant]

REACTIONS (7)
  - Road traffic accident [Recovered/Resolved]
  - Hiatus hernia [Not Recovered/Not Resolved]
  - Cerebrovascular accident [Recovered/Resolved]
  - VIIth nerve paralysis [Recovered/Resolved]
  - Off label use [Unknown]
  - Prescribed overdose [Unknown]
  - Wrong technique in drug usage process [Unknown]
